FAERS Safety Report 20411042 (Version 1)
Quarter: 2022Q1

REPORT INFORMATION
  Report Type: Spontaneous
  Country: US (occurrence: US)
  Receive Date: 20220201
  Receipt Date: 20220201
  Transmission Date: 20220424
  Serious: Yes (Other)
  Sender: FDA-Public Use
  Company Number: US-SA-SAC20220125000268

PATIENT
  Age: 43 Year
  Sex: Female

DRUGS (1)
  1. DUPIXENT [Suspect]
     Active Substance: DUPILUMAB
     Indication: Asthma
     Dosage: ONCE(1X)
     Route: 058
     Dates: start: 20220104

REACTIONS (5)
  - Dystonia [Unknown]
  - Eye swelling [Unknown]
  - Tremor [Unknown]
  - Throat tightness [Unknown]
  - Product use issue [Unknown]
